FAERS Safety Report 13783596 (Version 2)
Quarter: 2017Q3

REPORT INFORMATION
  Report Type: Report from Study
  Country: US (occurrence: US)
  Receive Date: 20170724
  Receipt Date: 20170817
  Transmission Date: 20171127
  Serious: Yes (Other)
  Sender: FDA-Public Use
  Company Number: US-PFIZER INC-2017085811

PATIENT
  Age: 63 Year
  Sex: Female

DRUGS (3)
  1. IBRANCE [Suspect]
     Active Substance: PALBOCICLIB
     Indication: BREAST CANCER METASTATIC
     Dosage: 125 MG, CYCLIC (DAILY, 21 DAYS ON AND 7 DAYS OFF)
     Route: 048
     Dates: start: 20170222, end: 201703
  2. IBRANCE [Suspect]
     Active Substance: PALBOCICLIB
     Dosage: 125 MG, CYCLIC (DAILY, 21 DAYS ON AND 7 DAYS OFF)
     Route: 048
     Dates: start: 20170330
  3. FASLODEX [Concomitant]
     Active Substance: FULVESTRANT
     Dosage: UNK, MONTHLY
     Dates: start: 201610

REACTIONS (13)
  - Cough [Recovered/Resolved]
  - Nail discolouration [Unknown]
  - Alopecia [Recovering/Resolving]
  - Red blood cell count decreased [Recovering/Resolving]
  - Glossitis [Recovered/Resolved]
  - Stomatitis [Unknown]
  - Tumour marker increased [Unknown]
  - Thrombosis [Recovering/Resolving]
  - Lip swelling [Recovered/Resolved]
  - Pain in extremity [Unknown]
  - White blood cell count decreased [Recovering/Resolving]
  - Nasal discomfort [Recovered/Resolved]
  - Drug dose omission [Unknown]

NARRATIVE: CASE EVENT DATE: 2017
